FAERS Safety Report 11363011 (Version 1)
Quarter: 2015Q3

REPORT INFORMATION
  Report Type: Spontaneous
  Country: US (occurrence: None)
  Receive Date: 20150807
  Receipt Date: 20150807
  Transmission Date: 20151125
  Serious: Yes (Hospitalization)
  Sender: FDA-Public Use
  Company Number: None

PATIENT
  Age: 70 Year
  Sex: Male
  Weight: 104.1 kg

DRUGS (1)
  1. BUPROPION. [Suspect]
     Active Substance: BUPROPION
     Route: 048
     Dates: start: 20150503, end: 20150503

REACTIONS (14)
  - Urinary tract infection [None]
  - Parkinsonism [None]
  - Generalised tonic-clonic seizure [None]
  - Suicidal ideation [None]
  - Acute kidney injury [None]
  - Bladder outlet obstruction [None]
  - Vitamin D deficiency [None]
  - Hypothyroidism [None]
  - Schizoaffective disorder [None]
  - Drug interaction [None]
  - Hydronephrosis [None]
  - Psychotic disorder [None]
  - Delirium [None]
  - Essential hypertension [None]

NARRATIVE: CASE EVENT DATE: 20150503
